FAERS Safety Report 22277230 (Version 1)
Quarter: 2023Q2

REPORT INFORMATION
  Report Type: Spontaneous
  Country: KR (occurrence: KR)
  Receive Date: 20230503
  Receipt Date: 20230503
  Transmission Date: 20230722
  Serious: Yes (Other)
  Sender: FDA-Public Use
  Company Number: KR-BoehringerIngelheim-2023-BI-235168

PATIENT
  Age: 86 Year
  Sex: Female

DRUGS (5)
  1. MICARDIS [Suspect]
     Active Substance: TELMISARTAN
     Indication: Cognitive disorder
     Dates: start: 20201119
  2. TRAZODONE HYDROCHLORIDE [Suspect]
     Active Substance: TRAZODONE HYDROCHLORIDE
     Indication: Cognitive disorder
     Dosage: UNIT DOSE 1 DOSAGE FORM
     Dates: start: 20201119
  3. DONEPEZIL HYDROCHLORIDE [Suspect]
     Active Substance: DONEPEZIL HYDROCHLORIDE
     Indication: Cognitive disorder
     Dosage: UNIT DOSE 1 DOSAGE FORM
     Dates: start: 20201119
  4. CLOPIDOGREL BISULFATE [Suspect]
     Active Substance: CLOPIDOGREL BISULFATE
     Indication: Cognitive disorder
     Dosage: UNIT DOSE 1 DOSAGE FORM
     Dates: start: 20201119
  5. ROSUVASTATIN CALCIUM [Suspect]
     Active Substance: ROSUVASTATIN CALCIUM
     Indication: Cognitive disorder
     Dosage: UNIT DOSE 1 DOSAGE FORM
     Dates: start: 20201119

REACTIONS (1)
  - Delirium [Unknown]

NARRATIVE: CASE EVENT DATE: 20201119
